FAERS Safety Report 9033746 (Version 1)
Quarter: 2013Q1

REPORT INFORMATION
  Report Type: Spontaneous
  Country: US (occurrence: US)
  Receive Date: 20130128
  Receipt Date: 20130128
  Transmission Date: 20140127
  Serious: Yes (Hospitalization)
  Sender: FDA-Public Use
  Company Number: US-AMGEN-USASP2012074759

PATIENT
  Age: 57 Year
  Sex: Female

DRUGS (10)
  1. PROLIA [Suspect]
     Indication: OSTEOPOROSIS POSTMENOPAUSAL
     Dosage: UNK
     Dates: start: 20111004
  2. COMBIVENT [Concomitant]
     Dosage: UNK
  3. CALCIUM [Concomitant]
     Dosage: UNK
  4. VITAMIN D /00107901/ [Concomitant]
     Dosage: 2000 IU, BID
  5. FISH OIL [Concomitant]
     Dosage: 4000 IU, UNK
  6. VITAMIN C                          /00008001/ [Concomitant]
     Dosage: UNK UNK, BID
  7. MULTIVITAMINS [Concomitant]
     Dosage: UNK
  8. METOPROLOL [Concomitant]
     Indication: HYPERTENSION
     Dosage: UNK
     Dates: end: 201210
  9. ANTIHYPERTENSIVES [Concomitant]
     Indication: HYPERTENSION
     Dosage: UNK
     Dates: end: 201210
  10. TRIBENZOR [Concomitant]
     Indication: HYPERTENSION
     Dosage: UNK
     Dates: start: 201210

REACTIONS (16)
  - Dehydration [Unknown]
  - Bronchitis [Unknown]
  - Dyspnoea [Unknown]
  - Malaise [Unknown]
  - Vomiting [Unknown]
  - Diarrhoea [Unknown]
  - Dyspepsia [Unknown]
  - Weight decreased [Unknown]
  - Pyrexia [Unknown]
  - Feeling abnormal [Unknown]
  - Throat irritation [Unknown]
  - Hypotension [Unknown]
  - Calcium metabolism disorder [Unknown]
  - Drug interaction [Unknown]
  - Multiple allergies [Not Recovered/Not Resolved]
  - Allergy to animal [Not Recovered/Not Resolved]
